FAERS Safety Report 23905044 (Version 3)
Quarter: 2024Q3

REPORT INFORMATION
  Report Type: Spontaneous
  Country: CN (occurrence: CN)
  Receive Date: 20240527
  Receipt Date: 20240805
  Transmission Date: 20241017
  Serious: Yes (Hospitalization, Other)
  Sender: MERCK
  Company Number: CN-009507513-2310CHN007808

PATIENT
  Age: 67 Year
  Sex: Male
  Weight: 66 kg

DRUGS (4)
  1. PEMBROLIZUMAB [Suspect]
     Active Substance: PEMBROLIZUMAB
     Indication: Non-small cell lung cancer
     Dosage: 200 MG, Q3W
     Route: 041
     Dates: start: 20230313, end: 20240409
  2. LEVOTHYROXINE SODIUM [Concomitant]
     Active Substance: LEVOTHYROXINE SODIUM
     Indication: Hypothyroidism
     Dosage: 50 MICROGRAM, QD
     Route: 048
     Dates: start: 20230906
  3. LANSOPRAZOLE [Concomitant]
     Active Substance: LANSOPRAZOLE
     Indication: Prophylaxis
     Dosage: 15 MG, QD
     Route: 048
     Dates: start: 20230928
  4. PREDNISONE ACETATE [Concomitant]
     Active Substance: PREDNISONE ACETATE
     Indication: Prophylaxis
     Dosage: 10 MG, TID
     Route: 048
     Dates: start: 20230928

REACTIONS (10)
  - Decreased appetite [Recovered/Resolved]
  - Asthenia [Unknown]
  - Hypothyroidism [Unknown]
  - Arteriosclerosis coronary artery [Recovered/Resolved]
  - Blood uric acid increased [Unknown]
  - Haematuria [Unknown]
  - Neutrophil count decreased [Unknown]
  - Anaemia [Unknown]
  - Proteinuria [Unknown]
  - Urinary tract infection [Unknown]

NARRATIVE: CASE EVENT DATE: 20230901
